FAERS Safety Report 5384917-X (Version None)
Quarter: 2007Q3

REPORT INFORMATION
  Report Type: 
  Country: None (occurrence: None)
  Receive Date: 20070709
  Receipt Date: 20070703
  Transmission Date: 20080115
  Serious: Yes (Other)
  Sender: FDA-Public Use
  Company Number: 2007BI011078

PATIENT
  Age: 58 Year
  Sex: Female

DRUGS (6)
  1. NATALIZUMAB [Suspect]
     Indication: MULTIPLE SCLEROSIS
     Dosage: 300 MG; QM; IV
     Route: 042
     Dates: start: 20070222
  2. PROVIGIL [Concomitant]
  3. PAROXETINE [Concomitant]
  4. CLONAZEPAM [Concomitant]
  5. ANTIBIOTICS (NOS) [Concomitant]
  6. ACTONEL [Concomitant]

REACTIONS (1)
  - BASAL CELL CARCINOMA [None]
